FAERS Safety Report 12678468 (Version 2)
Quarter: 2016Q3

REPORT INFORMATION
  Report Type: Spontaneous
  Country: BR (occurrence: BR)
  Receive Date: 20160823
  Receipt Date: 20160901
  Transmission Date: 20161109
  Serious: Yes (Hospitalization)
  Sender: FDA-Public Use
  Company Number: BR-ALLERGAN-1666461US

PATIENT
  Age: 52 Year
  Sex: Female

DRUGS (1)
  1. COMBIGAN [Suspect]
     Active Substance: BRIMONIDINE TARTRATE\TIMOLOL MALEATE
     Indication: PRODUCT USED FOR UNKNOWN INDICATION
     Dosage: 30 GTT, SINGLE
     Route: 048
     Dates: start: 20160819, end: 20160819

REACTIONS (6)
  - Dizziness [Recovered/Resolved]
  - Bradycardia [Recovered/Resolved]
  - Accidental overdose [Unknown]
  - Hypotension [Recovered/Resolved]
  - Incorrect route of drug administration [Unknown]
  - Somnolence [Recovered/Resolved]

NARRATIVE: CASE EVENT DATE: 20160819
